FAERS Safety Report 14081126 (Version 2)
Quarter: 2018Q1

REPORT INFORMATION
  Report Type: Spontaneous
  Country: FR (occurrence: FR)
  Receive Date: 20171012
  Receipt Date: 20180103
  Transmission Date: 20180508
  Serious: Yes (Hospitalization, Other)
  Sender: FDA-Public Use
  Company Number: FR-PFIZER INC-2017433303

PATIENT
  Age: 70 Year
  Sex: Male

DRUGS (15)
  1. ABASAGLAR [Concomitant]
     Active Substance: INSULIN GLARGINE
     Dosage: 200 IU, 1X/DAY IN THE MORNING
     Dates: end: 201705
  2. FLUOROURACILE PFIZER [Interacting]
     Active Substance: FLUOROURACIL
     Dosage: 4200 MG, CYCLIC
     Route: 042
     Dates: start: 20170427, end: 20170427
  3. ESIDREX [Concomitant]
     Active Substance: HYDROCHLOROTHIAZIDE
     Dosage: 12.5 MG, 1X/DAY IN THE MORNING
  4. IRINOTECAN HCL [Interacting]
     Active Substance: IRINOTECAN HYDROCHLORIDE
     Dosage: 253.5 MG, CYCLIC
     Route: 042
     Dates: start: 20170427, end: 20170427
  5. FOLINIC ACID [Concomitant]
     Active Substance: LEUCOVORIN
     Dosage: UNK
     Dates: start: 20170427
  6. PROGRAF [Concomitant]
     Active Substance: TACROLIMUS\TACROLIMUS ANHYDROUS
     Dosage: 2 MG, DAILY
  7. FOLINIC ACID [Concomitant]
     Active Substance: LEUCOVORIN
     Indication: PANCREATIC CARCINOMA
     Dosage: UNK
     Dates: start: 20170329
  8. FLUOROURACILE PFIZER [Interacting]
     Active Substance: FLUOROURACIL
     Indication: PANCREATIC CARCINOMA
     Dosage: UNK
     Dates: start: 20170329
  9. INNOHEP [Concomitant]
     Active Substance: TINZAPARIN SODIUM
     Dosage: 12000 IU, 1X/DAY AT 7 AM
     Dates: end: 201705
  10. IRINOTECAN HCL [Suspect]
     Active Substance: IRINOTECAN HYDROCHLORIDE
     Indication: PANCREATIC CARCINOMA
     Dosage: UNK
     Dates: start: 20170329
  11. OXALIPLATIN HOSPIRA [Interacting]
     Active Substance: OXALIPLATIN
     Indication: PANCREATIC CARCINOMA
     Dosage: UNK
     Dates: start: 20170329
  12. APROVEL [Concomitant]
     Active Substance: IRBESARTAN
     Dosage: 75 MG, 1X/DAY
  13. METFORMIN [Concomitant]
     Active Substance: METFORMIN HYDROCHLORIDE
     Dosage: 500 MG, 1X/DAY
  14. OXALIPLATIN HOSPIRA [Interacting]
     Active Substance: OXALIPLATIN
     Dosage: 105 MG, CYCLIC
     Route: 042
     Dates: start: 20170427, end: 20170427
  15. BISOPROLOL [Concomitant]
     Active Substance: BISOPROLOL
     Dosage: 2.5 MG, 1X/DAY

REACTIONS (15)
  - Acute kidney injury [Unknown]
  - Metabolic acidosis [Unknown]
  - Hypovolaemic shock [Recovered/Resolved]
  - Arrhythmia [Unknown]
  - Diarrhoea [Recovered/Resolved]
  - Fall [Unknown]
  - Hypotension [Unknown]
  - Vomiting [Recovered/Resolved]
  - Thirst [Unknown]
  - Oliguria [Unknown]
  - Craniocerebral injury [Unknown]
  - Hypokalaemia [Unknown]
  - Drug interaction [Recovered/Resolved]
  - Atrial fibrillation [Unknown]
  - Decreased appetite [Recovered/Resolved]

NARRATIVE: CASE EVENT DATE: 20170507
